FAERS Safety Report 5732961-2 (Version None)
Quarter: 2008Q2

REPORT INFORMATION
  Report Type: 
  Country: None (occurrence: None)
  Receive Date: 20080509
  Receipt Date: 20080506
  Transmission Date: 20081010
  Serious: Yes (Life-Threatening, Hospitalization, Other)
  Sender: FDA-Public Use
  Company Number: UA-BAYER-200817932GPV

PATIENT
  Age: 23 Year
  Sex: Male
  Weight: 70 kg

DRUGS (1)
  1. BETAFERON [Suspect]
     Indication: RELAPSING-REMITTING MULTIPLE SCLEROSIS
     Dosage: TOTAL DAILY DOSE: 250 MG
     Route: 058
     Dates: start: 20071227, end: 20080504

REACTIONS (3)
  - CONVULSION [None]
  - HYPERTHERMIA [None]
  - LOSS OF CONSCIOUSNESS [None]
